FAERS Safety Report 4360704-6 (Version None)
Quarter: 2004Q2

REPORT INFORMATION
  Report Type: 
  Country: None (occurrence: None)
  Receive Date: 20040519
  Receipt Date: 20040519
  Transmission Date: 20050107
  Serious: Yes (Other)
  Sender: FDA-Public Use
  Company Number: None

PATIENT
  Age: 46 Year
  Sex: Female
  Weight: 82 kg

DRUGS (1)
  1. FLUORESCEIN (AKENA) [Suspect]
     Indication: ANGIOGRAM
     Dosage: 5 ML IV X 1
     Route: 042
     Dates: start: 20031117

REACTIONS (2)
  - PRURITUS [None]
  - URTICARIA [None]
